FAERS Safety Report 20538669 (Version 1)
Quarter: 2022Q1

REPORT INFORMATION
  Report Type: Report from Study
  Country: CA (occurrence: CA)
  Receive Date: 20220302
  Receipt Date: 20220302
  Transmission Date: 20220423
  Serious: Yes (Hospitalization)
  Sender: FDA-Public Use
  Company Number: CA-JNJFOC-20210917378

PATIENT
  Age: 37 Year
  Sex: Male
  Weight: 66.284 kg

DRUGS (3)
  1. REMICADE [Suspect]
     Active Substance: INFLIXIMAB
     Indication: Colitis ulcerative
     Route: 042
     Dates: start: 20210422
  2. REMICADE [Suspect]
     Active Substance: INFLIXIMAB
     Dosage: 31-MAR-2024
     Route: 042
     Dates: start: 20210507, end: 20210909
  3. PREDNISONE [Concomitant]
     Active Substance: PREDNISONE
     Indication: Colitis ulcerative
     Route: 048

REACTIONS (6)
  - Tremor [Unknown]
  - Anaphylactic reaction [Unknown]
  - Infusion related reaction [Unknown]
  - Diarrhoea [Not Recovered/Not Resolved]
  - Off label use [Unknown]
  - Product use issue [Unknown]

NARRATIVE: CASE EVENT DATE: 20210901
